FAERS Safety Report 25584795 (Version 1)
Quarter: 2025Q3

REPORT INFORMATION
  Report Type: Spontaneous
  Country: GB (occurrence: None)
  Receive Date: 20250721
  Receipt Date: 20250721
  Transmission Date: 20251020
  Serious: Yes (Other)
  Sender: ORION
  Company Number: GB-002147023-NVSC2025GB113412

PATIENT
  Sex: Female

DRUGS (5)
  1. METHOTREXATE [Suspect]
     Active Substance: METHOTREXATE
     Indication: Chronic spontaneous urticaria
     Dates: start: 20240314, end: 20240402
  2. XOLAIR [Suspect]
     Active Substance: OMALIZUMAB
     Indication: Chronic spontaneous urticaria
     Dates: start: 20250210, end: 20250704
  3. CYCLOSPORINE [Suspect]
     Active Substance: CYCLOSPORINE
     Indication: Chronic spontaneous urticaria
     Dates: start: 20240709, end: 20250704
  4. CYCLOSPORINE [Suspect]
     Active Substance: CYCLOSPORINE
  5. MYCOPHENOLATE MOFETIL [Suspect]
     Active Substance: MYCOPHENOLATE MOFETIL
     Indication: Chronic spontaneous urticaria
     Dosage: 250 MG, BID (OM/500MG ON)
     Dates: start: 20240416, end: 20240702

REACTIONS (5)
  - Angioedema [Unknown]
  - Drug ineffective for unapproved indication [Unknown]
  - Product use in unapproved indication [Unknown]
  - Renal impairment [Unknown]
  - Drug intolerance [Unknown]
